FAERS Safety Report 18156981 (Version 1)
Quarter: 2020Q3

REPORT INFORMATION
  Report Type: Spontaneous
  Country: US (occurrence: US)
  Receive Date: 20200817
  Receipt Date: 20200817
  Transmission Date: 20201103
  Serious: No
  Sender: FDA-Public Use
  Company Number: None

PATIENT
  Age: 76 Year
  Sex: Female
  Weight: 79.2 kg

DRUGS (11)
  1. ALEVE [Concomitant]
     Active Substance: NAPROXEN SODIUM
  2. COLACE [Concomitant]
     Active Substance: DOCUSATE SODIUM
  3. ELIQUIS [Concomitant]
     Active Substance: APIXABAN
  4. ALPRAZOLAM 0.25MG [Concomitant]
     Active Substance: ALPRAZOLAM
  5. AMLODIPINE [Concomitant]
     Active Substance: AMLODIPINE BESYLATE
  6. HUMALOG [Concomitant]
     Active Substance: INSULIN LISPRO
  7. CLARITIN [Concomitant]
     Active Substance: LORATADINE
  8. LOSARTAN 25MG [Concomitant]
     Active Substance: LOSARTAN
  9. TYLENOL [Concomitant]
     Active Substance: ACETAMINOPHEN
  10. LANTUS [Concomitant]
     Active Substance: INSULIN GLARGINE
  11. CAPECITABINE. [Suspect]
     Active Substance: CAPECITABINE
     Indication: SMALL INTESTINE CARCINOMA
     Route: 048
     Dates: start: 20200728, end: 20200803

REACTIONS (2)
  - Therapy interrupted [None]
  - Fall [None]

NARRATIVE: CASE EVENT DATE: 20200803
